FAERS Safety Report 7640229-2 (Version None)
Quarter: 2011Q3

REPORT INFORMATION
  Report Type: 
  Country: None (occurrence: None)
  Receive Date: 20110728
  Receipt Date: 20110725
  Transmission Date: 20111222
  Serious: Yes (Other)
  Sender: FDA-Public Use
  Company Number: DE-BAYER-2011-064568

PATIENT

DRUGS (2)
  1. MARCUMAR [Concomitant]
     Dosage: 2 DF, UNK
  2. AVELOX [Suspect]
     Route: 042

REACTIONS (2)
  - GASTROINTESTINAL HAEMORRHAGE [None]
  - COAGULOPATHY [None]
